FAERS Safety Report 10347180 (Version 1)
Quarter: 2014Q3

REPORT INFORMATION
  Report Type: Spontaneous
  Country: US (occurrence: US)
  Receive Date: 20140729
  Receipt Date: 20140729
  Transmission Date: 20150326
  Serious: Yes (Death)
  Sender: FDA-Public Use
  Company Number: US-ELI_LILLY_AND_COMPANY-US201407008874

PATIENT

DRUGS (6)
  1. GEMCITABINE HYDROCHLORIDE. [Suspect]
     Active Substance: GEMCITABINE HYDROCHLORIDE
     Indication: ACQUIRED GENE MUTATION
     Dosage: 600 MG/M2, CYCLICAL (D3, 10, Q 3 WEEKS)
     Route: 042
  2. VELIPARIB [Suspect]
     Active Substance: VELIPARIB
     Indication: ACQUIRED GENE MUTATION
     Dosage: 1 DF, BID (DAY 1 - X)
     Route: 048
  3. GEMCITABINE HYDROCHLORIDE. [Suspect]
     Active Substance: GEMCITABINE HYDROCHLORIDE
     Indication: ADENOCARCINOMA PANCREAS
  4. CISPLATIN. [Suspect]
     Active Substance: CISPLATIN
     Indication: ACQUIRED GENE MUTATION
     Dosage: 25 MG/M2, CYCLICAL (D3, 10, Q 3 WEEKS)
     Route: 042
  5. CISPLATIN. [Suspect]
     Active Substance: CISPLATIN
     Indication: ADENOCARCINOMA PANCREAS
  6. VELIPARIB [Suspect]
     Active Substance: VELIPARIB
     Indication: ADENOCARCINOMA PANCREAS

REACTIONS (2)
  - Intestinal perforation [Fatal]
  - Diverticulitis [Fatal]
